FAERS Safety Report 16680811 (Version 3)
Quarter: 2019Q4

REPORT INFORMATION
  Report Type: Spontaneous
  Country: FR (occurrence: FR)
  Receive Date: 20190808
  Receipt Date: 20191002
  Transmission Date: 20200122
  Serious: Yes (Hospitalization)
  Sender: FDA-Public Use
  Company Number: FR-AUROBINDO-AUR-APL-2019-046179

PATIENT
  Age: 69 Year
  Sex: Female

DRUGS (11)
  1. LAMOTRIGINE ARROW LAB DISPERSIBLE TABLETS 50 MG [Suspect]
     Active Substance: LAMOTRIGINE
     Indication: BIPOLAR DISORDER
     Dosage: 50 MILLIGRAM, BETWEEN 50 MG AND 100 MG DAILY
     Route: 048
     Dates: start: 201611, end: 20190712
  2. LAMICTAL [Suspect]
     Active Substance: LAMOTRIGINE
     Indication: BIPOLAR DISORDER
     Dosage: 50 MILLIGRAM, BETWEEN 50 MG AND 100 MG DAILY
     Route: 048
     Dates: start: 201611, end: 20190812
  3. PRAVASTATIN. [Concomitant]
     Active Substance: PRAVASTATIN
     Indication: HYPERCHOLESTEROLAEMIA
     Dosage: UNK
     Route: 065
  4. ESOMEPRAZOLE. [Concomitant]
     Active Substance: ESOMEPRAZOLE MAGNESIUM
     Indication: ABDOMINAL PAIN UPPER
     Dosage: 1 DOSAGE FORM, ONCE A DAY, IN THE EVENING
     Route: 065
     Dates: start: 1990
  5. PROPRANOLOL [Concomitant]
     Active Substance: PROPRANOLOL HYDROCHLORIDE
     Indication: PRODUCT USED FOR UNKNOWN INDICATION
     Dosage: 0.5 DOSAGE FORM
     Route: 065
  6. LAMOTRIGINE ARROW LAB 100 MG DISPERSIBLE TABLET OR CHEWABLE [Suspect]
     Active Substance: LAMOTRIGINE
     Indication: BIPOLAR DISORDER
     Dosage: 100 MILLIGRAM, BETWEEN 50 MG AND 100 MG DAILY
     Route: 048
  7. AMLODIPINE [Concomitant]
     Active Substance: AMLODIPINE BESYLATE
     Indication: PRODUCT USED FOR UNKNOWN INDICATION
     Dosage: UNK
     Route: 065
     Dates: start: 2015
  8. DUOPLAVIN [Concomitant]
     Active Substance: ASPIRIN\CLOPIDOGREL
     Indication: PRODUCT USED FOR UNKNOWN INDICATION
     Dosage: UNK
     Route: 065
     Dates: end: 201908
  9. LAMICTAL [Suspect]
     Active Substance: LAMOTRIGINE
     Dosage: 50 MILLIGRAM, BETWEEN 50 MG AND 100 MG DAILY
     Route: 048
     Dates: start: 201611, end: 20190812
  10. TEMESTA [Concomitant]
     Indication: PRODUCT USED FOR UNKNOWN INDICATION
     Dosage: 1 MG AT 07:00 P,M. AND 2 MG AT NIGHT
     Route: 065
     Dates: start: 1990
  11. TERALITHE [Concomitant]
     Active Substance: LITHIUM CARBONATE
     Indication: PRODUCT USED FOR UNKNOWN INDICATION
     Dosage: 1 DOSAGE FORM IN THE MORNING AND THE EVENING
     Route: 065

REACTIONS (7)
  - Pain [Not Recovered/Not Resolved]
  - Swelling face [Not Recovered/Not Resolved]
  - Restlessness [Not Recovered/Not Resolved]
  - Lipoma [Not Recovered/Not Resolved]
  - Hallucinations, mixed [Recovered/Resolved]
  - Disturbance in attention [Recovering/Resolving]
  - Fatigue [Not Recovered/Not Resolved]

NARRATIVE: CASE EVENT DATE: 201611
